FAERS Safety Report 7498836-6 (Version None)
Quarter: 2011Q2

REPORT INFORMATION
  Report Type: 
  Country: None (occurrence: None)
  Receive Date: 20110524
  Receipt Date: 20110513
  Transmission Date: 20111010
  Serious: Yes (Other)
  Sender: FDA-Public Use
  Company Number: IT-ASTRAZENECA-2010SE45260

PATIENT
  Age: 65 Year
  Sex: Male

DRUGS (3)
  1. IRESSA [Suspect]
     Indication: NON-SMALL CELL LUNG CANCER METASTATIC
     Route: 048
     Dates: start: 20100701
  2. IRESSA [Suspect]
     Dosage: 5 TABLETS A WEEK
     Route: 048
     Dates: start: 20101101
  3. IRESSA [Suspect]
     Dosage: 6 TABLETS A WEEK
     Route: 048
     Dates: start: 20110101

REACTIONS (3)
  - TRANSAMINASES INCREASED [None]
  - OFF LABEL USE [None]
  - CYSTITIS HAEMORRHAGIC [None]
